FAERS Safety Report 15642918 (Version 1)
Quarter: 2018Q4

REPORT INFORMATION
  Report Type: Spontaneous
  Country: US (occurrence: US)
  Receive Date: 20181114
  Receipt Date: 20181114
  Transmission Date: 20190205
  Serious: No
  Sender: FDA-Public Use
  Company Number: None

PATIENT
  Age: 72 Year
  Sex: Female
  Weight: 97 kg

DRUGS (17)
  1. VENLAFAXINE [Concomitant]
     Active Substance: VENLAFAXINE HYDROCHLORIDE
  2. ONDANSETRON [Concomitant]
     Active Substance: ONDANSETRON
  3. OXYBUTYNIN. [Concomitant]
     Active Substance: OXYBUTYNIN CHLORIDE
  4. ASPIRIN. [Concomitant]
     Active Substance: ASPIRIN
  5. CEPHALEXIN. [Concomitant]
     Active Substance: CEPHALEXIN
  6. ALBUTEROL. [Concomitant]
     Active Substance: ALBUTEROL
  7. FLUTICASONE. [Concomitant]
     Active Substance: FLUTICASONE
  8. CHOLECALCIFEROL [Concomitant]
     Active Substance: CHOLECALCIFEROL
  9. ALLOPURINOL. [Concomitant]
     Active Substance: ALLOPURINOL
  10. ARIPLPRAZOLE [Concomitant]
  11. BOSULIF [Concomitant]
     Active Substance: BOSUTINIB MONOHYDRATE
  12. LOSARTAN. [Concomitant]
     Active Substance: LOSARTAN
  13. MIRTAZAPINE. [Concomitant]
     Active Substance: MIRTAZAPINE
  14. BOSULIF [Suspect]
     Active Substance: BOSUTINIB MONOHYDRATE
     Indication: CHRONIC MYELOID LEUKAEMIA
     Dosage: ?          QUANTITY:100 MG MILLIGRAM(S);OTHER FREQUENCY:BID - 4 TABLETS;?
     Route: 048
     Dates: start: 20180717
  15. BUSPIRONE [Concomitant]
     Active Substance: BUSPIRONE HYDROCHLORIDE
  16. CLOPIDOGREL [Concomitant]
     Active Substance: CLOPIDOGREL BISULFATE
  17. OCUVITE [Concomitant]
     Active Substance: VITAMINS

REACTIONS (2)
  - Erythema [None]
  - Skin exfoliation [None]

NARRATIVE: CASE EVENT DATE: 20181031
